FAERS Safety Report 12943900 (Version 1)
Quarter: 2016Q4

REPORT INFORMATION
  Report Type: Spontaneous
  Country: US (occurrence: US)
  Receive Date: 20161115
  Receipt Date: 20161115
  Transmission Date: 20170207
  Serious: No
  Sender: FDA-Public Use
  Company Number: US-ROCHE-1754928

PATIENT
  Sex: Female

DRUGS (1)
  1. TAMIFLU [Suspect]
     Active Substance: OSELTAMIVIR PHOSPHATE
     Indication: INFLUENZA
     Dosage: 75 MG CAPSULE ONCE EVERY 12 HOURS
     Route: 048
     Dates: start: 20160426, end: 20160501

REACTIONS (1)
  - Dry mouth [Not Recovered/Not Resolved]
